FAERS Safety Report 15334746 (Version 2)
Quarter: 2018Q3

REPORT INFORMATION
  Report Type: Report from Study
  Country: US (occurrence: US)
  Receive Date: 20180830
  Receipt Date: 20180926
  Transmission Date: 20181010
  Serious: Yes (Hospitalization)
  Sender: FDA-Public Use
  Company Number: US-JNJFOC-20180740058

PATIENT
  Age: 75 Year
  Sex: Female
  Weight: 61 kg

DRUGS (10)
  1. GABAPENTIN. [Concomitant]
     Active Substance: GABAPENTIN
  2. SOTALOL. [Concomitant]
     Active Substance: SOTALOL
  3. NORCO [Concomitant]
     Active Substance: ACETAMINOPHEN\HYDROCODONE BITARTRATE
  4. SERTRALINE [Concomitant]
     Active Substance: SERTRALINE HYDROCHLORIDE
  5. FOLIC ACID. [Concomitant]
     Active Substance: FOLIC ACID
  6. IMBRUVICA [Suspect]
     Active Substance: IBRUTINIB
     Indication: CHRONIC LYMPHOCYTIC LEUKAEMIA
     Route: 048
     Dates: start: 20180502
  7. FUROSEMIDE. [Concomitant]
     Active Substance: FUROSEMIDE
  8. TIZANIDINE. [Concomitant]
     Active Substance: TIZANIDINE
  9. ASPIR 81 [Concomitant]
  10. FENTANYL. [Concomitant]
     Active Substance: FENTANYL

REACTIONS (3)
  - Pneumonia bacterial [Recovered/Resolved]
  - Atrial fibrillation [Not Recovered/Not Resolved]
  - Urinary tract infection bacterial [Recovered/Resolved]

NARRATIVE: CASE EVENT DATE: 20180601
